FAERS Safety Report 24174650 (Version 2)
Quarter: 2025Q1

REPORT INFORMATION
  Report Type: Spontaneous
  Country: US (occurrence: US)
  Receive Date: 20240805
  Receipt Date: 20250122
  Transmission Date: 20250408
  Serious: Yes (Other)
  Sender: PFIZER
  Company Number: US-PFIZER INC-PV202400100000

PATIENT
  Age: 52 Year
  Sex: Female

DRUGS (19)
  1. TUKYSA [Suspect]
     Active Substance: TUCATINIB
     Dosage: 300 MG, 2X/DAY
  2. CAPECITABINE [Concomitant]
     Active Substance: CAPECITABINE
  3. DEXAMETHASONE [Concomitant]
     Active Substance: DEXAMETHASONE
  4. DICLOFENAC [Concomitant]
     Active Substance: DICLOFENAC
  5. ELIQUIS [Concomitant]
     Active Substance: APIXABAN
  6. GRANISETRON [Concomitant]
     Active Substance: GRANISETRON
  7. HYDROCHLOROTHIAZIDE [Concomitant]
     Active Substance: HYDROCHLOROTHIAZIDE
  8. KLOR-CON [Concomitant]
     Active Substance: POTASSIUM CHLORIDE
  9. ONDANSETRON [Concomitant]
     Active Substance: ONDANSETRON
  10. PROMETHAZINE [Concomitant]
     Active Substance: PROMETHAZINE HYDROCHLORIDE
  11. BACLOFEN [Concomitant]
     Active Substance: BACLOFEN
  12. CHLORTHALIDONE [Concomitant]
     Active Substance: CHLORTHALIDONE
  13. GABAPENTIN [Concomitant]
     Active Substance: GABAPENTIN
  14. JANUVIA [Concomitant]
     Active Substance: SITAGLIPTIN PHOSPHATE
  15. METFORMIN [Concomitant]
     Active Substance: METFORMIN HYDROCHLORIDE
  16. NIFEDIPINE [Concomitant]
     Active Substance: NIFEDIPINE
  17. POTASSIUM CHLORIDE [Concomitant]
     Active Substance: POTASSIUM CHLORIDE
  18. VITAMIN D NOS [Concomitant]
     Active Substance: CHOLECALCIFEROL\ERGOCALCIFEROL
  19. HERCEPTIN [Concomitant]
     Active Substance: TRASTUZUMAB

REACTIONS (11)
  - Relapsing-remitting multiple sclerosis [Unknown]
  - Deep vein thrombosis [Unknown]
  - Hypokalaemia [Unknown]
  - Neuropathy peripheral [Unknown]
  - Fatigue [Unknown]
  - Neoplasm progression [Unknown]
  - Adnexa uteri mass [Unknown]
  - Oedema peripheral [Unknown]
  - Diarrhoea [Unknown]
  - Blood creatinine increased [Unknown]
  - Haemoglobin decreased [Unknown]
